FAERS Safety Report 6032811-3 (Version None)
Quarter: 2008Q4

REPORT INFORMATION
  Report Type: 
  Country: None (occurrence: None)
  Receive Date: 20081224
  Receipt Date: 20080926
  Transmission Date: 20090506
  Serious: No
  Sender: FDA-Public Use
  Company Number: 2008PV036863

PATIENT
  Age: 65 Year
  Sex: Female

DRUGS (7)
  1. SYMLIN [Suspect]
     Indication: TYPE 2 DIABETES MELLITUS
     Dosage: 60 MCG;TID;SC; 30 MCG; 15 MCG
     Route: 058
     Dates: start: 20080719, end: 20080101
  2. SYMLIN [Suspect]
     Indication: TYPE 2 DIABETES MELLITUS
     Dosage: 60 MCG;TID;SC; 30 MCG; 15 MCG
     Route: 058
     Dates: end: 20080101
  3. SYMLIN [Suspect]
     Indication: TYPE 2 DIABETES MELLITUS
     Dosage: 60 MCG;TID;SC; 30 MCG; 15 MCG
     Route: 058
     Dates: start: 20080101, end: 20080716
  4. SYMLIN [Suspect]
     Indication: TYPE 2 DIABETES MELLITUS
     Dosage: 60 MCG;TID;SC; 30 MCG; 15 MCG
     Route: 058
     Dates: start: 20080717, end: 20080718
  5. SYMLIN [Suspect]
     Indication: TYPE 2 DIABETES MELLITUS
     Dosage: 60 MCG;TID;SC; 30 MCG; 15 MCG
     Route: 058
     Dates: start: 20080101, end: 20081023
  6. SYMLIN [Suspect]
     Indication: TYPE 2 DIABETES MELLITUS
     Dosage: 60 MCG;TID;SC; 30 MCG; 15 MCG
     Route: 058
     Dates: start: 20081024
  7. SYMLIN [Suspect]

REACTIONS (3)
  - OEDEMA [None]
  - OEDEMA PERIPHERAL [None]
  - SWELLING FACE [None]
